FAERS Safety Report 8858582 (Version 1)
Quarter: 2012Q4

REPORT INFORMATION
  Report Type: Report from Study
  Country: FR (occurrence: FR)
  Receive Date: 20121024
  Receipt Date: 20121024
  Transmission Date: 20130627
  Serious: Yes (Death, Hospitalization)
  Sender: FDA-Public Use
  Company Number: FR-009507513-1106FRA00080

PATIENT
  Age: 56 Year
  Sex: Female
  Weight: 65 kg

DRUGS (11)
  1. RALTEGRAVIR POTASSIUM [Suspect]
     Indication: HIV INFECTION
     Dosage: 400 mg, bid
     Route: 048
     Dates: start: 20110429, end: 20110512
  2. RALTEGRAVIR POTASSIUM [Suspect]
     Dosage: 400 mg, bid
     Route: 048
     Dates: start: 20110513, end: 20110619
  3. DARUNAVIR [Suspect]
     Indication: HIV INFECTION
     Dosage: 200 mg, bid
     Route: 048
     Dates: start: 20110429, end: 20110512
  4. DARUNAVIR [Suspect]
     Dosage: 200 mg, bid
     Route: 048
     Dates: start: 20110513, end: 20110619
  5. RITONAVIR [Suspect]
     Indication: HIV INFECTION
     Dosage: 100 mg, qd
     Route: 048
     Dates: start: 20110429, end: 20110512
  6. RITONAVIR [Suspect]
     Dosage: 100 mg, qd
     Route: 048
     Dates: start: 20110513, end: 20110619
  7. SULFAMETHOXAZOLE (+) TRIMETHOPRIM [Concomitant]
     Dosage: 400/80
     Route: 048
     Dates: start: 20110414, end: 20110620
  8. IMOVANE [Concomitant]
     Indication: INSOMNIA
     Dosage: 3.75 mg, qd
     Route: 048
     Dates: start: 20110527, end: 20110619
  9. ATARAX (HYDROXYZINE HYDROCHLORIDE) [Concomitant]
     Indication: PRURIGO
     Dosage: 25 mg, bid
     Route: 048
     Dates: start: 201103
  10. EFFERALGAN [Concomitant]
     Dosage: 500 mg, UNK
     Route: 048
     Dates: start: 20110527, end: 20110619
  11. DEXERYL CREAM [Concomitant]
     Route: 061

REACTIONS (2)
  - Drug reaction with eosinophilia and systemic symptoms [Fatal]
  - Multi-organ failure [Fatal]
